FAERS Safety Report 12845060 (Version 2)
Quarter: 2016Q4

REPORT INFORMATION
  Report Type: Report from Study
  Country: None (occurrence: US)
  Receive Date: 20161013
  Receipt Date: 20161221
  Transmission Date: 20170207
  Serious: Yes (Hospitalization, Other)
  Sender: FDA-Public Use
  Company Number: US-ABBVIE-16K-163-1747679-00

PATIENT
  Age: 32 Year
  Sex: Female
  Weight: 89.89 kg

DRUGS (3)
  1. ACETAMINOPHEN COD # 3 [Concomitant]
     Indication: SPINAL COLUMN STENOSIS
  2. GABAPENTIN. [Concomitant]
     Active Substance: GABAPENTIN
     Indication: NEURALGIA
  3. HUMIRA [Suspect]
     Active Substance: ADALIMUMAB
     Indication: CROHN^S DISEASE
     Route: 058
     Dates: start: 20160419

REACTIONS (5)
  - Facial paralysis [Recovered/Resolved]
  - Dyskinesia [Unknown]
  - Cerebral haematoma [Not Recovered/Not Resolved]
  - Dysphonia [Not Recovered/Not Resolved]
  - Migraine [Not Recovered/Not Resolved]

NARRATIVE: CASE EVENT DATE: 2016
